FAERS Safety Report 4642096-8 (Version None)
Quarter: 2005Q2

REPORT INFORMATION
  Report Type: 
  Country: None (occurrence: None)
  Receive Date: 20050420
  Receipt Date: 20050405
  Transmission Date: 20051028
  Serious: Yes (Death)
  Sender: FDA-Public Use
  Company Number: USA050494964

PATIENT
  Age: 56 Year
  Sex: Female
  Weight: 51 kg

DRUGS (17)
  1. CYMBALTA [Suspect]
     Dosage: 30 MG/ 1 DAY
     Dates: start: 20050330
  2. POTASSIUM CHLORIDE [Concomitant]
  3. SULFADIAZINE [Concomitant]
  4. FEXOFENADINE HCL [Concomitant]
  5. DARVOCET-N 100 [Concomitant]
  6. SODIUM CHLORIDE [Concomitant]
  7. PROTONIX [Concomitant]
  8. LEVAQUIN [Concomitant]
  9. COREG [Concomitant]
  10. ASPIRIN [Concomitant]
  11. VASOTEC [Concomitant]
  12. LASIX [Concomitant]
  13. DIGOXIN [Concomitant]
  14. ALPRAZOLAM [Concomitant]
  15. REGULAR INSULIN [Concomitant]
  16. VICOPROFEN [Concomitant]
  17. GLUCOSE [Concomitant]

REACTIONS (7)
  - ARRHYTHMIA [None]
  - BLOOD CREATININE INCREASED [None]
  - BLOOD GLUCOSE INCREASED [None]
  - BLOOD THYROID STIMULATING HORMONE INCREASED [None]
  - HYPERKALAEMIA [None]
  - HYPOGLYCAEMIA [None]
  - MEDICATION ERROR [None]
